FAERS Safety Report 4725158-6 (Version None)
Quarter: 2005Q3

REPORT INFORMATION
  Report Type: 
  Country: None (occurrence: None)
  Receive Date: 20050725
  Receipt Date: 20050712
  Transmission Date: 20060218
  Serious: Yes (Hospitalization, Other)
  Sender: FDA-Public Use
  Company Number: 2005099735

PATIENT
  Age: 69 Year
  Sex: Female
  Weight: 75.2971 kg

DRUGS (3)
  1. DILANTIN [Suspect]
     Indication: EPILEPSY
     Dosage: 200 MG (1 IN 1 D), ORAL
     Route: 048
  2. DILANTIN [Suspect]
     Indication: EPILEPSY
     Dosage: INTRAVENOUS
     Route: 042
     Dates: start: 20050711
  3. METHYLPREDNISOLONE [Suspect]
     Indication: CHRONIC OBSTRUCTIVE PULMONARY DISEASE
     Dosage: INTRAVENOUS
     Route: 042
     Dates: start: 20050701

REACTIONS (16)
  - ANTICONVULSANT DRUG LEVEL BELOW THERAPEUTIC [None]
  - BLOOD ALBUMIN DECREASED [None]
  - BLOOD CHLORIDE DECREASED [None]
  - BLOOD GLUCOSE INCREASED [None]
  - BLOOD SODIUM DECREASED [None]
  - CHRONIC OBSTRUCTIVE PULMONARY DISEASE [None]
  - CONDITION AGGRAVATED [None]
  - EPILEPSY [None]
  - HAEMATOCRIT DECREASED [None]
  - HAEMOGLOBIN DECREASED [None]
  - INFUSION SITE ERYTHEMA [None]
  - INFUSION SITE SWELLING [None]
  - INJECTION SITE EXTRAVASATION [None]
  - OEDEMA PERIPHERAL [None]
  - PNEUMONIA [None]
  - SKIN DISCOLOURATION [None]
